FAERS Safety Report 21609907 (Version 1)
Quarter: 2022Q4

REPORT INFORMATION
  Report Type: Spontaneous
  Country: US (occurrence: None)
  Receive Date: 20221117
  Receipt Date: 20221117
  Transmission Date: 20230113
  Serious: No
  Sender: FDA-Public Use
  Company Number: None

PATIENT
  Age: 14 Year
  Sex: Male

DRUGS (1)
  1. METHYLPHENIDATE HYDROCHLORIDE [Suspect]
     Active Substance: METHYLPHENIDATE HYDROCHLORIDE
     Indication: Attention deficit hyperactivity disorder
     Dosage: OTHER QUANTITY : 1 TABLET(S);?FREQUENCY : DAILY;?
     Route: 048
     Dates: start: 20220111, end: 20220112

REACTIONS (8)
  - Product substitution issue [None]
  - Therapeutic response changed [None]
  - Agitation [None]
  - Mood swings [None]
  - Disturbance in attention [None]
  - Attention deficit hyperactivity disorder [None]
  - Condition aggravated [None]
  - Product dosage form issue [None]

NARRATIVE: CASE EVENT DATE: 20220111
